FAERS Safety Report 17010045 (Version 1)
Quarter: 2019Q4

REPORT INFORMATION
  Report Type: Spontaneous
  Country: FR (occurrence: FR)
  Receive Date: 20191108
  Receipt Date: 20191108
  Transmission Date: 20200122
  Serious: Yes (Other)
  Sender: FDA-Public Use
  Company Number: FR-PFIZER INC-2019477178

PATIENT
  Age: 28 Year
  Sex: Female
  Weight: 62 kg

DRUGS (1)
  1. PAMIDRONATE DISODIUM. [Suspect]
     Active Substance: PAMIDRONATE DISODIUM
     Indication: COMPLEX REGIONAL PAIN SYNDROME
     Dosage: 90 MG, CYCLIC (4 COURSES OTHER 10 DAYS)
     Route: 041
     Dates: start: 20190223, end: 20190304

REACTIONS (3)
  - Thrombophlebitis superficial [Recovering/Resolving]
  - Off label use [Unknown]
  - Product use in unapproved indication [Unknown]

NARRATIVE: CASE EVENT DATE: 20190223
